FAERS Safety Report 15540841 (Version 7)
Quarter: 2021Q1

REPORT INFORMATION
  Report Type: Spontaneous
  Country: GB (occurrence: GB)
  Receive Date: 20181023
  Receipt Date: 20210105
  Transmission Date: 20210419
  Serious: Yes (Other)
  Sender: FDA-Public Use
  Company Number: PHHY2018GB128646

PATIENT
  Age: 61 Year
  Sex: Female

DRUGS (50)
  1. TRASTUZUMAB EMTANSINE [Suspect]
     Active Substance: ADO-TRASTUZUMAB EMTANSINE
     Indication: HER2 POSITIVE BREAST CANCER
     Dosage: 172 MG, Q3W
     Route: 042
     Dates: start: 20151201, end: 20151221
  2. PERTUZUMAB. [Suspect]
     Active Substance: PERTUZUMAB
     Indication: BREAST CANCER METASTATIC
     Dosage: 420 MG, TIW (TARGETED THERAPY)
     Route: 042
     Dates: start: 20150622, end: 20151102
  3. IRRADIATED RED BLOOD CELLS?LEUKOCYTES REDUCED [Concomitant]
     Active Substance: HUMAN RED BLOOD CELL
     Dosage: 2 UNIT
     Route: 042
     Dates: start: 20180526, end: 20180526
  4. CAPECITABINE. [Suspect]
     Active Substance: CAPECITABINE
     Route: 048
  5. VINORELBINE [Suspect]
     Active Substance: VINORELBINE TARTRATE
     Indication: HER2 POSITIVE BREAST CANCER
     Dosage: 60 MG
     Route: 048
  6. VINORELBINE [Suspect]
     Active Substance: VINORELBINE TARTRATE
     Dosage: 60 MG
     Route: 065
     Dates: start: 20180608, end: 20180810
  7. VINORELBINE [Suspect]
     Active Substance: VINORELBINE TARTRATE
     Route: 048
  8. DOCETAXEL. [Suspect]
     Active Substance: DOCETAXEL
     Indication: HER2 POSITIVE BREAST CANCER
     Dosage: 108 MG, TIW (DOSE MODIFIED)
     Route: 042
     Dates: start: 20150602, end: 20150602
  9. ERIBULIN MESILATE [Suspect]
     Active Substance: ERIBULIN
     Dosage: 1.5 MG, TIW
     Route: 042
  10. TRASTUZUMAB EMTANSINE [Suspect]
     Active Substance: ADO-TRASTUZUMAB EMTANSINE
     Dosage: 172 MG, TIW
     Route: 042
  11. PERTUZUMAB. [Suspect]
     Active Substance: PERTUZUMAB
     Indication: HER2 POSITIVE BREAST CANCER
     Dosage: 840 MG (LOADING DOSE)
     Route: 042
  12. CO?AMOXICLAV [Concomitant]
     Active Substance: AMOXICILLIN\CLAVULANATE POTASSIUM
     Indication: LOWER RESPIRATORY TRACT INFECTION
     Dosage: 625 MG
     Route: 048
     Dates: start: 20170222, end: 20170222
  13. FOLIC ACID. [Concomitant]
     Active Substance: FOLIC ACID
     Indication: BLOOD FOLATE DECREASED
     Dosage: 5 MG, QD
     Route: 048
     Dates: start: 20150828, end: 201708
  14. MUPIROCIN. [Concomitant]
     Active Substance: MUPIROCIN
     Dosage: 2 %
     Route: 061
     Dates: start: 20160620, end: 20160624
  15. LOPERAMIDE [Concomitant]
     Active Substance: LOPERAMIDE
     Dosage: UNK
     Route: 048
     Dates: start: 20170901, end: 20171124
  16. DOMPERIDONE [Concomitant]
     Active Substance: DOMPERIDONE
     Indication: PRODUCT USED FOR UNKNOWN INDICATION
     Dosage: 30 MG, QD
     Route: 048
     Dates: start: 20160406, end: 20160421
  17. CIPROFLOXACIN. [Concomitant]
     Active Substance: CIPROFLOXACIN
     Indication: PRODUCT USED FOR UNKNOWN INDICATION
     Dosage: 500 MG, QD
     Route: 048
     Dates: start: 20151218, end: 20151225
  18. VINORELBINE [Suspect]
     Active Substance: VINORELBINE TARTRATE
     Route: 048
  19. TRASTUZUMAB. [Suspect]
     Active Substance: TRASTUZUMAB
     Dosage: 1 OT, Q3W
     Route: 065
  20. TRASTUZUMAB. [Suspect]
     Active Substance: TRASTUZUMAB
     Dosage: 140 MG, QW
     Route: 042
  21. NERATINIB [Suspect]
     Active Substance: NERATINIB
     Indication: BREAST CANCER METASTATIC
     Dosage: 40 MG, QD
     Route: 048
  22. TRASTUZUMAB. [Suspect]
     Active Substance: TRASTUZUMAB
     Indication: HER2 POSITIVE BREAST CANCER
     Dosage: 300 MG, TIW (DOSE MODIFIED)
     Route: 042
     Dates: start: 20150629, end: 20151102
  23. TRASTUZUMAB. [Suspect]
     Active Substance: TRASTUZUMAB
     Dosage: UNK UNK, Q3W (DOSE REDUCED)
     Route: 042
  24. PERTUZUMAB. [Suspect]
     Active Substance: PERTUZUMAB
     Dosage: TARGETED THERAPY
     Route: 042
  25. NERATINIB [Suspect]
     Active Substance: NERATINIB
     Route: 048
  26. FILGRASTIM [Concomitant]
     Active Substance: FILGRASTIM
     Indication: PRODUCT USED FOR UNKNOWN INDICATION
     Dosage: 300 UG, QD
     Route: 058
     Dates: start: 20150725, end: 20150730
  27. FILGRASTIM [Concomitant]
     Active Substance: FILGRASTIM
     Dosage: EVERY DAY FOR 3 DAYS STARTING ON DAYS 3 AND 11
     Route: 058
     Dates: start: 20160421, end: 20160712
  28. CAPECITABINE. [Suspect]
     Active Substance: CAPECITABINE
     Indication: BREAST CANCER METASTATIC
     Dosage: 1500 MG (0.5 DAY)
     Route: 048
  29. DOCETAXEL. [Suspect]
     Active Substance: DOCETAXEL
     Dosage: 86 MG, TIW (DOSE DISCONTINUED)
     Route: 042
     Dates: start: 20150629, end: 20150720
  30. TAZOCIN [Concomitant]
     Active Substance: PIPERACILLIN SODIUM\TAZOBACTAM SODIUM
     Indication: LOWER RESPIRATORY TRACT INFECTION
     Dosage: UNK
     Route: 042
     Dates: start: 20170213, end: 20170215
  31. DOMPERIDONE [Concomitant]
     Active Substance: DOMPERIDONE
     Dosage: 10 MG
     Route: 048
     Dates: start: 20160406, end: 20160421
  32. GENTAMICIN. [Concomitant]
     Active Substance: GENTAMICIN
     Indication: LOWER RESPIRATORY TRACT INFECTION
     Dosage: UNK
     Route: 042
     Dates: start: 20170213, end: 201702
  33. CAPECITABINE. [Suspect]
     Active Substance: CAPECITABINE
     Indication: HER2 POSITIVE BREAST CANCER
     Dosage: 3000 MG, QD
     Route: 048
     Dates: start: 20170210, end: 20170728
  34. PERTUZUMAB. [Suspect]
     Active Substance: PERTUZUMAB
     Dosage: LOADING DOSE
     Route: 042
  35. FOLIC ACID. [Concomitant]
     Active Substance: FOLIC ACID
     Indication: BLOOD FOLATE DECREASED
  36. MEROPENEM. [Concomitant]
     Active Substance: MEROPENEM
     Indication: LOWER RESPIRATORY TRACT INFECTION
     Dosage: UNK
     Route: 042
     Dates: start: 20170215, end: 20170221
  37. SANDO K [Concomitant]
     Indication: NUTRITIONAL SUPPLEMENTATION
     Dosage: 2 DF, QD
     Route: 048
     Dates: start: 20150828, end: 20150830
  38. IRRADIATED RED BLOOD CELLS?LEUKOCYTES REDUCED [Concomitant]
     Active Substance: HUMAN RED BLOOD CELL
     Indication: PRODUCT USED FOR UNKNOWN INDICATION
     Dosage: 2 UNIT
     Route: 042
     Dates: start: 20160702, end: 20160702
  39. TRASTUZUMAB. [Suspect]
     Active Substance: TRASTUZUMAB
     Dosage: 350 MG (LOADING DOSE)
     Route: 042
     Dates: start: 20150601, end: 20150601
  40. TRASTUZUMAB. [Suspect]
     Active Substance: TRASTUZUMAB
     Dosage: 172 MG, QW
     Route: 042
  41. NERATINIB [Suspect]
     Active Substance: NERATINIB
     Indication: HER2 POSITIVE BREAST CANCER
     Dosage: 40 MG, QD
     Route: 048
     Dates: start: 20170901, end: 20180314
  42. MUPIROCIN. [Concomitant]
     Active Substance: MUPIROCIN
     Indication: PROPHYLAXIS
     Dosage: 6 %, QD
     Route: 061
     Dates: start: 20160620, end: 20160624
  43. MUPIROCIN. [Concomitant]
     Active Substance: MUPIROCIN
     Dosage: 5 DAYS
     Route: 061
     Dates: start: 20160620, end: 20160624
  44. VINORELBINE [Suspect]
     Active Substance: VINORELBINE TARTRATE
     Indication: BREAST CANCER METASTATIC
     Dosage: 60 MG
     Route: 065
     Dates: start: 20180503, end: 20180608
  45. ERIBULIN MESILATE [Suspect]
     Active Substance: ERIBULIN
     Indication: HER2 POSITIVE BREAST CANCER
     Dosage: 1.5 MG, Q3W
     Route: 042
     Dates: start: 20160411
  46. TRASTUZUMAB EMTANSINE [Suspect]
     Active Substance: ADO-TRASTUZUMAB EMTANSINE
     Dosage: 140 MG, Q3W
     Route: 042
     Dates: start: 20160215, end: 20160215
  47. TRASTUZUMAB EMTANSINE [Suspect]
     Active Substance: ADO-TRASTUZUMAB EMTANSINE
     Dosage: 140 MG, TIW
     Route: 042
  48. PERTUZUMAB. [Suspect]
     Active Substance: PERTUZUMAB
     Dosage: 420 MG, TIW (TARGETED THERAPY)
     Route: 042
  49. LOPERAMIDE [Concomitant]
     Active Substance: LOPERAMIDE
     Indication: DIARRHOEA
     Dosage: 2 MG, UNK
     Route: 048
     Dates: start: 20170901, end: 20171124
  50. AMLODIPINE [Concomitant]
     Active Substance: AMLODIPINE BESYLATE
     Indication: PRODUCT USED FOR UNKNOWN INDICATION
     Dosage: 10 MG, UNK
     Route: 048

REACTIONS (29)
  - Pancytopenia [Not Recovered/Not Resolved]
  - Cough [Recovered/Resolved]
  - Weight decreased [Not Recovered/Not Resolved]
  - Fatigue [Recovered/Resolved]
  - Hyperchlorhydria [Recovered/Resolved]
  - Dyspepsia [Recovered/Resolved]
  - Throat irritation [Not Recovered/Not Resolved]
  - Odynophagia [Not Recovered/Not Resolved]
  - Diarrhoea [Recovered/Resolved]
  - Rash pruritic [Recovered/Resolved]
  - Palpitations [Unknown]
  - Fatigue [Recovered/Resolved]
  - Cough [Recovered/Resolved]
  - Decreased appetite [Recovered/Resolved]
  - Decreased appetite [Recovered/Resolved]
  - Pyrexia [Recovered/Resolved]
  - Pyrexia [Recovered/Resolved]
  - Neuropathy peripheral [Recovering/Resolving]
  - Alopecia [Not Recovered/Not Resolved]
  - Tremor [Recovered/Resolved]
  - Thrombocytopenia [Not Recovered/Not Resolved]
  - Neutropenia [Not Recovered/Not Resolved]
  - Hypoaesthesia [Unknown]
  - Lethargy [Recovered/Resolved]
  - Folate deficiency [Recovered/Resolved]
  - Mucosal inflammation [Recovered/Resolved]
  - Dysphonia [Recovering/Resolving]
  - Colitis [Not Recovered/Not Resolved]
  - Nausea [Recovered/Resolved]

NARRATIVE: CASE EVENT DATE: 2015
